FAERS Safety Report 20096151 (Version 1)
Quarter: 2021Q4

REPORT INFORMATION
  Report Type: Spontaneous
  Country: None (occurrence: PE)
  Receive Date: 20211122
  Receipt Date: 20211122
  Transmission Date: 20220303
  Serious: Yes (Hospitalization, Other)
  Sender: FDA-Public Use
  Company Number: PE-Hisun Pharmaceuticals-2122122

PATIENT
  Age: 19 Year
  Sex: Female

DRUGS (2)
  1. DAUNORUBICIN HYDROCHLORIDE [Suspect]
     Active Substance: DAUNORUBICIN HYDROCHLORIDE
     Indication: Chloroma
  2. CYTARABINE [Suspect]
     Active Substance: CYTARABINE

REACTIONS (2)
  - Neutropenic colitis [Unknown]
  - Haematotoxicity [Unknown]
